FAERS Safety Report 5620827-8 (Version None)
Quarter: 2008Q1

REPORT INFORMATION
  Report Type: 
  Country: None (occurrence: None)
  Receive Date: 20080208
  Receipt Date: 20080128
  Transmission Date: 20080703
  Serious: Yes (Death, Hospitalization, Other)
  Sender: FDA-Public Use
  Company Number: JP-PFIZER INC-2007108453

PATIENT
  Sex: Female
  Weight: 39.8 kg

DRUGS (12)
  1. GABAPEN [Suspect]
     Indication: FACIAL PALSY
     Route: 048
     Dates: start: 20071218, end: 20071224
  2. GABAPEN [Suspect]
     Indication: TRIGEMINAL NEURALGIA
  3. LENDORMIN [Suspect]
     Indication: INSOMNIA
     Route: 048
     Dates: start: 20071011, end: 20071224
  4. BREDININ [Concomitant]
     Route: 048
  5. GASTER [Concomitant]
     Route: 048
  6. YODEL [Concomitant]
     Route: 048
     Dates: start: 20071120, end: 20071228
  7. MEVALOTIN [Concomitant]
     Route: 048
  8. MICARDIS [Concomitant]
     Route: 048
  9. LASIX [Concomitant]
     Route: 048
     Dates: start: 20071104, end: 20071228
  10. TRICHLORMETHIAZIDE [Concomitant]
     Route: 048
     Dates: start: 20071001, end: 20071228
  11. PREDONINE [Concomitant]
     Route: 048
  12. VOLTAREN [Concomitant]
     Route: 048
     Dates: start: 20071218, end: 20071226

REACTIONS (10)
  - ALTERED STATE OF CONSCIOUSNESS [None]
  - ENCEPHALITIS [None]
  - ENCEPHALITIS FUNGAL [None]
  - FACIAL PALSY [None]
  - FUNGAL SEPSIS [None]
  - PNEUMONIA ASPIRATION [None]
  - PYREXIA [None]
  - SOMNOLENCE [None]
  - TACHYCARDIA [None]
  - VITH NERVE PARALYSIS [None]
